FAERS Safety Report 4747248-4 (Version None)
Quarter: 2005Q3

REPORT INFORMATION
  Report Type: 
  Country: None (occurrence: None)
  Receive Date: 20050817
  Receipt Date: 20050812
  Transmission Date: 20060218
  Serious: Yes (Hospitalization)
  Sender: FDA-Public Use
  Company Number: DE-MERCK-0508DEU00110

PATIENT
  Sex: Female

DRUGS (1)
  1. NOROXIN [Suspect]
     Route: 048

REACTIONS (1)
  - ELECTROLYTE IMBALANCE [None]
